FAERS Safety Report 24776197 (Version 1)
Quarter: 2024Q4

REPORT INFORMATION
  Report Type: Spontaneous
  Country: US (occurrence: US)
  Receive Date: 20241226
  Receipt Date: 20241226
  Transmission Date: 20250114
  Serious: Yes (Death, Life-Threatening, Hospitalization)
  Sender: STRIDES
  Company Number: US-STRIDES ARCOLAB LIMITED-2024SP016883

PATIENT
  Age: 66 Year
  Sex: Male

DRUGS (11)
  1. ETOPOSIDE [Suspect]
     Active Substance: ETOPOSIDE
     Indication: Adrenocortical carcinoma
     Dosage: UNK
     Route: 065
  2. ETOPOSIDE [Suspect]
     Active Substance: ETOPOSIDE
     Indication: Metastasis
  3. MITOTANE [Suspect]
     Active Substance: MITOTANE
     Indication: Cushing^s syndrome
     Dosage: UNK
     Route: 065
  4. MITOTANE [Suspect]
     Active Substance: MITOTANE
     Indication: Adrenocortical carcinoma
     Dosage: UNK, (UP TITRATION)
     Route: 065
  5. MITOTANE [Suspect]
     Active Substance: MITOTANE
     Indication: Metastasis
  6. OSILODROSTAT [Suspect]
     Active Substance: OSILODROSTAT
     Indication: Cushing^s syndrome
     Dosage: UNK
     Route: 065
  7. OSILODROSTAT [Suspect]
     Active Substance: OSILODROSTAT
     Indication: Adrenocortical carcinoma
     Dosage: UNK, (UP TITRATION)
     Route: 065
  8. OSILODROSTAT [Suspect]
     Active Substance: OSILODROSTAT
     Indication: Metastasis
  9. CARBOPLATIN [Suspect]
     Active Substance: CARBOPLATIN
     Indication: Adrenocortical carcinoma
     Dosage: UNK
     Route: 065
  10. CARBOPLATIN [Suspect]
     Active Substance: CARBOPLATIN
     Indication: Metastasis
  11. DEXAMETHASONE [Suspect]
     Active Substance: DEXAMETHASONE
     Indication: Prophylaxis
     Dosage: UNK
     Route: 065

REACTIONS (2)
  - Death [Fatal]
  - Drug ineffective for unapproved indication [Unknown]
